FAERS Safety Report 14174987 (Version 2)
Quarter: 2017Q4

REPORT INFORMATION
  Report Type: Report from Study
  Country: US (occurrence: US)
  Receive Date: 20171109
  Receipt Date: 20171127
  Transmission Date: 20180321
  Serious: Yes (Hospitalization, Other)
  Sender: FDA-Public Use
  Company Number: US-TEVA-824139ISR

PATIENT
  Age: 41 Year
  Sex: Male

DRUGS (2)
  1. AUSTEDO [Suspect]
     Active Substance: DEUTETRABENAZINE
     Dosage: 24 MILLIGRAM DAILY; MAINTENANCE DOSE OF 12 MILLIGRAMS TWICE A DAY
     Route: 065
  2. AUSTEDO [Suspect]
     Active Substance: DEUTETRABENAZINE
     Indication: HUNTINGTON^S DISEASE
     Dosage: START
     Route: 065
     Dates: start: 20170906

REACTIONS (10)
  - Disease progression [Unknown]
  - Anxiety [Unknown]
  - Mood altered [Unknown]
  - Aggression [Unknown]
  - Incoherent [Unknown]
  - Mental disorder [Unknown]
  - Gait disturbance [Unknown]
  - Psychotic disorder [Unknown]
  - Psychiatric symptom [Recovered/Resolved]
  - Unresponsive to stimuli [Recovered/Resolved]

NARRATIVE: CASE EVENT DATE: 201710
